FAERS Safety Report 8611425-2 (Version None)
Quarter: 2012Q3

REPORT INFORMATION
  Report Type: 
  Country: None (occurrence: None)
  Receive Date: 20120805
  Receipt Date: 20120727
  Transmission Date: 20120928
  Serious: Yes (Hospitalization)
  Sender: FDA-Public Use
  Company Number: 2012032952

PATIENT
  Age: 58 Year
  Sex: Female
  Weight: 87.9978 kg

DRUGS (11)
  1. ALBUTEROL [Concomitant]
  2. HIZENTRA [Suspect]
     Indication: HYPOGAMMAGLOBULINAEMIA
     Dosage: (??-???-2012 SUBCUTANEOUS), (14 G 1X/WEEK, 70 ML; MULTIPLE SITES OVER 1-2 HOURS SUBCUTANEOUS)
     Route: 058
     Dates: start: 20120101
  3. HIZENTRA [Suspect]
     Indication: HYPOGAMMAGLOBULINAEMIA
     Dosage: (??-???-2012 SUBCUTANEOUS), (14 G 1X/WEEK, 70 ML; MULTIPLE SITES OVER 1-2 HOURS SUBCUTANEOUS)
     Route: 058
     Dates: start: 20120726
  4. LUNESTA [Concomitant]
  5. ACETAMINOPHEN [Concomitant]
  6. DIPHENHYDRAMINE HCL [Concomitant]
  7. ZIAC (GALENIC /BISOPROLOL/HYDROCHLOROTHIAZIDE/) [Concomitant]
  8. LIDOCAINE/PRILOCAINE (EMLA /00675501/) [Concomitant]
  9. EXCEDRIN MIGRAINE (THOMAPYRIN N) [Concomitant]
  10. SERTRALINE HYDROCHLORIDE [Concomitant]
  11. PRILOSEC [Concomitant]

REACTIONS (4)
  - ANAEMIA [None]
  - DIARRHOEA [None]
  - NAUSEA [None]
  - FATIGUE [None]
